FAERS Safety Report 5892247-2 (Version None)
Quarter: 2008Q3

REPORT INFORMATION
  Report Type: 
  Country: None (occurrence: None)
  Receive Date: 20080922
  Receipt Date: 20080915
  Transmission Date: 20090109
  Serious: Yes (Other)
  Sender: FDA-Public Use
  Company Number: GB-GILEAD-2008-0018182

PATIENT
  Age: 38 Year
  Sex: Female
  Weight: 72 kg

DRUGS (3)
  1. EMTRIVA [Suspect]
     Route: 048
     Dates: start: 20080422, end: 20080902
  2. VIREAD [Suspect]
     Route: 048
     Dates: start: 20080422, end: 20080902
  3. EFAVIRENZ [Suspect]
     Route: 048
     Dates: start: 20080422, end: 20080902

REACTIONS (1)
  - HEPATITIS [None]
